FAERS Safety Report 6964049-7 (Version None)
Quarter: 2010Q3

REPORT INFORMATION
  Report Type: 
  Country: None (occurrence: None)
  Receive Date: 20100902
  Receipt Date: 20100902
  Transmission Date: 20110219
  Serious: Yes (Hospitalization)
  Sender: FDA-Public Use
  Company Number: None

PATIENT
  Sex: Female
  Weight: 110.5 kg

DRUGS (6)
  1. PEG-L-ASPARAGINASE (PEGASPARGASE, ONCOSPAR) [Suspect]
     Dosage: 5650 IU
     Dates: end: 20100816
  2. PREDNISONE [Suspect]
     Dosage: 2380 MG
     Dates: end: 20100830
  3. VINCRISTINE SULFATE [Suspect]
     Dosage: 6 MG
     Dates: end: 20100827
  4. CYTARABINE [Suspect]
     Dosage: 70 MG
     Dates: end: 20100813
  5. DAUNORUBICIN HCL [Suspect]
     Dosage: 171 MG
     Dates: end: 20100827
  6. METHOTREXATE [Suspect]
     Dosage: 15 MG
     Dates: end: 20100820

REACTIONS (2)
  - HEAD INJURY [None]
  - HYPERGLYCAEMIA [None]
